FAERS Safety Report 7126409-3 (Version None)
Quarter: 2010Q4

REPORT INFORMATION
  Report Type: 
  Country: None (occurrence: None)
  Receive Date: 20101129
  Receipt Date: 20101117
  Transmission Date: 20110411
  Serious: Yes (Death, Life-Threatening, Hospitalization, Disabling, Other)
  Sender: FDA-Public Use
  Company Number: US-SANOFI-AVENTIS-2010SA070676

PATIENT
  Sex: Male
  Weight: 75 kg

DRUGS (9)
  1. PLAVIX [Suspect]
     Route: 048
     Dates: start: 20101022
  2. PLAVIX [Suspect]
     Route: 048
  3. LOVENOX [Suspect]
     Route: 065
     Dates: start: 20101022
  4. INTEGRILIN [Suspect]
     Route: 065
     Dates: start: 20101022, end: 20101026
  5. INTEGRILIN [Suspect]
     Route: 065
     Dates: start: 20101103
  6. ANGIOMAX [Suspect]
     Route: 065
     Dates: start: 20101022
  7. NITROGLYCERIN [Suspect]
     Route: 065
     Dates: start: 20101022, end: 20101104
  8. ALL OTHER THERAPEUTIC PRODUCTS [Suspect]
     Route: 065
     Dates: start: 20101103
  9. DARVOCET-N 100 [Suspect]
     Route: 065
     Dates: start: 20101103

REACTIONS (5)
  - HAEMORRHAGE INTRACRANIAL [None]
  - HYPERSENSITIVITY [None]
  - HYPOTENSION [None]
  - MYOCARDIAL INFARCTION [None]
  - THROMBOCYTOPENIA [None]
